FAERS Safety Report 6073398-9 (Version None)
Quarter: 2009Q1

REPORT INFORMATION
  Report Type: 
  Country: None (occurrence: None)
  Receive Date: 20090206
  Receipt Date: 20090126
  Transmission Date: 20090719
  Serious: Yes (Hospitalization)
  Sender: FDA-Public Use
  Company Number: CZ-2007-027046

PATIENT
  Sex: Female

DRUGS (2)
  1. FLUDARA [Suspect]
     Indication: CHRONIC LYMPHOCYTIC LEUKAEMIA
     Dates: start: 20070601
  2. COTRIM [Suspect]
     Indication: PHARYNGITIS
     Dates: start: 20070701

REACTIONS (2)
  - DRUG HYPERSENSITIVITY [None]
  - PHARYNGITIS [None]
